FAERS Safety Report 8024794-1 (Version None)
Quarter: 2012Q1

REPORT INFORMATION
  Report Type: 
  Country: None (occurrence: None)
  Receive Date: 20120105
  Receipt Date: 20111223
  Transmission Date: 20120608
  Serious: Yes (Other)
  Sender: FDA-Public Use
  Company Number: CA-UCBSA-046460

PATIENT
  Age: 64 Year
  Sex: Female
  Weight: 165.1 kg

DRUGS (2)
  1. CIMZIA [Suspect]
     Indication: RHEUMATOID ARTHRITIS
     Route: 058
     Dates: start: 20110823
  2. CIMZIA [Suspect]
     Route: 058
     Dates: start: 20110712, end: 20110809

REACTIONS (2)
  - HERPES ZOSTER [None]
  - SKIN ULCER [None]
